FAERS Safety Report 24755466 (Version 11)
Quarter: 2025Q4

REPORT INFORMATION
  Report Type: Report from Study
  Country: US (occurrence: None)
  Receive Date: 20241219
  Receipt Date: 20251231
  Transmission Date: 20260118
  Serious: Yes (Hospitalization, Other)
  Sender: SYNDAX
  Company Number: US-SYNDAX PHARMACEUTICALS, INC.-2024US000583

PATIENT
  Age: 24 Year
  Sex: Male
  Weight: 70.295 kg

DRUGS (19)
  1. REVUFORJ [Suspect]
     Active Substance: REVUMENIB CITRATE
     Indication: Acute myeloid leukaemia recurrent
     Dosage: 160 MILLIGRAM, BID
     Route: 061
     Dates: start: 20241130
  2. REVUFORJ [Suspect]
     Active Substance: REVUMENIB CITRATE
     Dosage: 25 MILLIGRAM, BID
     Route: 061
     Dates: start: 20241130
  3. REVUFORJ [Suspect]
     Active Substance: REVUMENIB CITRATE
     Dosage: 220 MILLIGRAM, BID
     Route: 061
  4. ONDANSETRON HYDROCHLORIDE [Concomitant]
     Active Substance: ONDANSETRON HYDROCHLORIDE
     Indication: Product used for unknown indication
     Dosage: UNK
     Route: 065
  5. FOLIC ACID [Concomitant]
     Active Substance: FOLIC ACID
     Indication: Product used for unknown indication
     Dosage: UNK
     Route: 065
  6. LEVOFLOXACIN [Concomitant]
     Active Substance: LEVOFLOXACIN
     Indication: Product used for unknown indication
     Dosage: UNK
     Route: 065
  7. MULTIVITAMINS                      /07504101/ [Concomitant]
     Indication: Product used for unknown indication
     Dosage: UNK
     Route: 065
  8. ALBUTEROL SULFATE [Concomitant]
     Active Substance: ALBUTEROL SULFATE
     Indication: Product used for unknown indication
     Dosage: UNK
     Route: 065
  9. ACYCLOVIR [Concomitant]
     Active Substance: ACYCLOVIR
     Indication: Product used for unknown indication
     Dosage: UNK
     Route: 065
  10. BACTRIM DS [Concomitant]
     Active Substance: SULFAMETHOXAZOLE\TRIMETHOPRIM
     Indication: Product used for unknown indication
     Dosage: UNK
     Route: 065
  11. CLARITIN                           /00917501/ [Concomitant]
     Indication: Product used for unknown indication
     Dosage: UNK
     Route: 065
  12. FLUCONAZOLE [Concomitant]
     Active Substance: FLUCONAZOLE
     Indication: Product used for unknown indication
     Dosage: UNK
     Route: 065
  13. PANTOPRAZOLE SODIUM [Concomitant]
     Active Substance: PANTOPRAZOLE SODIUM
     Indication: Product used for unknown indication
     Dosage: UNK
     Route: 065
  14. LETERMOVIR [Concomitant]
     Active Substance: LETERMOVIR
     Indication: Product used for unknown indication
     Dosage: UNK
     Route: 065
  15. TACROLIMUS [Concomitant]
     Active Substance: TACROLIMUS
     Indication: Product used for unknown indication
     Dosage: UNK
     Route: 065
  16. COMPLETE OMEGA 3 6 9 [Concomitant]
     Indication: Product used for unknown indication
     Dosage: UNK
     Route: 065
  17. MILK THISTLE PLUS                  /08512201/ [Concomitant]
     Indication: Product used for unknown indication
     Route: 065
  18. MK 7 [ASCORBIC ACID;COLECALCIFEROL;MENAQUINONE-7;ZINC CITRATE DIHYDRAT [Concomitant]
     Indication: Product used for unknown indication
     Route: 065
  19. VITAMIN D3 [Concomitant]
     Active Substance: CHOLECALCIFEROL
     Indication: Product used for unknown indication
     Route: 065

REACTIONS (17)
  - Pulmonary oedema [Recovered/Resolved]
  - Platelet count decreased [Unknown]
  - Differentiation syndrome [Recovered/Resolved]
  - Heart rate decreased [Recovered/Resolved]
  - Bone pain [Recovered/Resolved]
  - Circadian rhythm sleep disorder [Not Recovered/Not Resolved]
  - Fatigue [Recovering/Resolving]
  - Myalgia [Recovered/Resolved]
  - Diarrhoea [Recovering/Resolving]
  - Nausea [Recovered/Resolved]
  - Vomiting [Recovered/Resolved]
  - Hepatic enzyme increased [Not Recovered/Not Resolved]
  - Liver disorder [Unknown]
  - Product dose omission issue [Unknown]
  - Product dose omission issue [Recovered/Resolved]
  - Osteopenia [Not Recovered/Not Resolved]
  - Iron overload [Not Recovered/Not Resolved]

NARRATIVE: CASE EVENT DATE: 20251101
